FAERS Safety Report 11681382 (Version 1)
Quarter: 2015Q4

REPORT INFORMATION
  Report Type: Spontaneous
  Country: US (occurrence: None)
  Receive Date: 20151028
  Receipt Date: 20151028
  Transmission Date: 20160304
  Serious: Yes (Life-Threatening, Hospitalization, Disabling, Other)
  Sender: FDA-Public Use
  Company Number: None

PATIENT
  Age: 25 Year
  Sex: Male
  Weight: 90.72 kg

DRUGS (7)
  1. NEUTRONTIN [Concomitant]
  2. CLOZARIL [Concomitant]
     Active Substance: CLOZAPINE
  3. BLOOD PRESSURE MED [Concomitant]
  4. PROTONIX [Concomitant]
     Active Substance: PANTOPRAZOLE SODIUM
  5. KLONAPIN [Concomitant]
  6. CLOZAPIN [Suspect]
     Active Substance: CLOZAPINE
     Dosage: 275 C
  7. ZOLOFT [Suspect]
     Active Substance: SERTRALINE HYDROCHLORIDE
     Indication: OBSESSIVE-COMPULSIVE DISORDER
     Dosage: 1 PILL Z/ 2 PILLS C
     Route: 048
     Dates: start: 20150415, end: 20150802

REACTIONS (10)
  - Feeling abnormal [None]
  - Loss of consciousness [None]
  - Gait disturbance [None]
  - Sedation [None]
  - Mental disorder [None]
  - Waist circumference increased [None]
  - Coordination abnormal [None]
  - Weight increased [None]
  - Repetitive speech [None]
  - Seizure [None]

NARRATIVE: CASE EVENT DATE: 20150802
